FAERS Safety Report 18929347 (Version 2)
Quarter: 2021Q1

REPORT INFORMATION
  Report Type: Spontaneous
  Country: US (occurrence: US)
  Receive Date: 20210223
  Receipt Date: 20210301
  Transmission Date: 20210420
  Serious: Yes (Hospitalization, Other)
  Sender: FDA-Public Use
  Company Number: US-009507513-2102USA007448

PATIENT
  Age: 30 Year
  Sex: Male

DRUGS (2)
  1. ZERBAXA [Suspect]
     Active Substance: CEFTOLOZANE SULFATE\TAZOBACTAM SODIUM
     Dosage: 3 GRAM, EVERY 8 HOURS
     Route: 048
     Dates: start: 202102, end: 202102
  2. ROCEPHIN [Concomitant]
     Active Substance: CEFTRIAXONE SODIUM

REACTIONS (3)
  - Recalled product administered [Unknown]
  - Recalled product [Unknown]
  - Pancytopenia [Unknown]

NARRATIVE: CASE EVENT DATE: 202102
